FAERS Safety Report 26020806 (Version 1)
Quarter: 2025Q4

REPORT INFORMATION
  Report Type: Spontaneous
  Country: US (occurrence: None)
  Receive Date: 20251108
  Receipt Date: 20251108
  Transmission Date: 20260117
  Serious: Yes (Hospitalization)
  Sender: FDA-CTU
  Company Number: None

PATIENT
  Age: 74 Year
  Sex: Male
  Weight: 63.5 kg

DRUGS (2)
  1. IPILIMUMAB [Suspect]
     Active Substance: IPILIMUMAB
     Dates: end: 20251015
  2. NIVOLUMAB [Suspect]
     Active Substance: NIVOLUMAB
     Dates: end: 20251015

REACTIONS (7)
  - Fatigue [None]
  - Hypophagia [None]
  - Nausea [None]
  - General physical health deterioration [None]
  - Retching [None]
  - Immune-mediated lung disease [None]
  - Oxygen saturation decreased [None]

NARRATIVE: CASE EVENT DATE: 20251027
